FAERS Safety Report 9001296 (Version 1)
Quarter: 2013Q1

REPORT INFORMATION
  Report Type: Spontaneous
  Country: US (occurrence: US)
  Receive Date: 20130107
  Receipt Date: 20130107
  Transmission Date: 20140127
  Serious: Yes (Death)
  Sender: FDA-Public Use
  Company Number: US-ASTRAZENECA-2013SE00710

PATIENT
  Age: 50 Year
  Sex: Female

DRUGS (5)
  1. QUETIAPINE [Suspect]
     Route: 048
  2. OXYCODONE [Suspect]
     Route: 048
  3. FLUOXETINE [Suspect]
     Route: 048
  4. OLANZAPINE [Suspect]
     Route: 048
  5. MIRTAZAPINE [Suspect]
     Route: 048

REACTIONS (2)
  - Drug abuse [Fatal]
  - Toxicity to various agents [Fatal]
